FAERS Safety Report 23666870 (Version 2)
Quarter: 2025Q3

REPORT INFORMATION
  Report Type: Spontaneous
  Country: EU (occurrence: EU)
  Receive Date: 20240325
  Receipt Date: 20250804
  Transmission Date: 20251021
  Serious: Yes (Hospitalization, Other)
  Sender: AUROBINDO
  Company Number: EU-AFSSAPS-AVMA2024000066

PATIENT
  Age: 35 Year
  Sex: Male

DRUGS (7)
  1. TRAMADOL [Suspect]
     Active Substance: TRAMADOL
     Indication: Product used for unknown indication
     Route: 065
  2. ATARAX [Suspect]
     Active Substance: HYDROXYZINE HYDROCHLORIDE
     Indication: Product used for unknown indication
     Route: 065
  3. CANNABIS SATIVA SUBSP. INDICA TOP [Suspect]
     Active Substance: CANNABIS SATIVA SUBSP. INDICA TOP
     Indication: Product used for unknown indication
     Route: 065
  4. ACETAMINOPHEN\BELLADONNA LEAF\CAFFEINE\OPIUM [Suspect]
     Active Substance: ACETAMINOPHEN\BELLADONNA LEAF\CAFFEINE\OPIUM
     Indication: Product used for unknown indication
     Route: 065
  5. LEVAMISOLE [Suspect]
     Active Substance: LEVAMISOLE
     Indication: Product used for unknown indication
     Route: 065
  6. SKENAN [Suspect]
     Active Substance: MORPHINE SULFATE
     Indication: Product used for unknown indication
     Route: 065
  7. MIDOMAFETAMINE [Suspect]
     Active Substance: MIDOMAFETAMINE
     Indication: Product used for unknown indication
     Route: 065

REACTIONS (3)
  - Poisoning [Recovered/Resolved]
  - Drug use disorder [Unknown]
  - Substance use disorder [Unknown]

NARRATIVE: CASE EVENT DATE: 20231119
